FAERS Safety Report 5642182-X (Version None)
Quarter: 2008Q1

REPORT INFORMATION
  Report Type: 
  Country: None (occurrence: None)
  Receive Date: 20080225
  Receipt Date: 20080212
  Transmission Date: 20080703
  Serious: Yes (Other)
  Sender: FDA-Public Use
  Company Number: US022657

PATIENT
  Age: 61 Year
  Sex: Female
  Weight: 70.7611 kg

DRUGS (6)
  1. PROVIGIL [Suspect]
     Indication: CATAPLEXY
     Dosage: 200 MG OD ORAL
     Route: 048
     Dates: start: 20020101
  2. PROVIGIL [Suspect]
     Indication: NARCOLEPSY
     Dosage: 200 MG OD ORAL
     Route: 048
     Dates: start: 20020101
  3. LIPITOR [Concomitant]
  4. VITAMIN B12 /00056201/ [Concomitant]
  5. CALCIUM W/VITAMIN D [Concomitant]
  6. ASPIRIN [Concomitant]

REACTIONS (5)
  - ANTINUCLEAR ANTIBODY POSITIVE [None]
  - CONNECTIVE TISSUE DISORDER [None]
  - LUPUS-LIKE SYNDROME [None]
  - MIGRAINE [None]
  - RASH [None]
